FAERS Safety Report 18286173 (Version 1)
Quarter: 2020Q3

REPORT INFORMATION
  Report Type: Report from Study
  Country: BR (occurrence: BR)
  Receive Date: 20200919
  Receipt Date: 20200919
  Transmission Date: 20201103
  Serious: Yes (Death, Other)
  Sender: FDA-Public Use
  Company Number: NVSC2020BR256203

PATIENT
  Age: 91 Year
  Sex: Male

DRUGS (1)
  1. EXELON [Suspect]
     Active Substance: RIVASTIGMINE TARTRATE
     Indication: PRODUCT USED FOR UNKNOWN INDICATION
     Dosage: 3 MG
     Route: 065

REACTIONS (3)
  - Asthenia [Unknown]
  - Dementia Alzheimer^s type [Fatal]
  - Pneumonia bacterial [Fatal]

NARRATIVE: CASE EVENT DATE: 20200728
